FAERS Safety Report 25828791 (Version 2)
Quarter: 2025Q3

REPORT INFORMATION
  Report Type: Report from Study
  Country: US (occurrence: US)
  Receive Date: 20250922
  Receipt Date: 20250923
  Transmission Date: 20251021
  Serious: No
  Sender: BIOVITRUM
  Company Number: US-BIOVITRUM-2025-US-012858

PATIENT
  Age: 54 Year
  Sex: Female

DRUGS (1)
  1. DOPTELET [Suspect]
     Active Substance: AVATROMBOPAG MALEATE
     Indication: Immune thrombocytopenia

REACTIONS (2)
  - Bone pain [Recovering/Resolving]
  - Drug ineffective [Unknown]
